FAERS Safety Report 8122608-2 (Version None)
Quarter: 2012Q1

REPORT INFORMATION
  Report Type: 
  Country: None (occurrence: None)
  Receive Date: 20120206
  Receipt Date: 20120123
  Transmission Date: 20120608
  Serious: Yes (Hospitalization)
  Sender: FDA-Public Use
  Company Number: CIO12001539

PATIENT
  Sex: Male

DRUGS (1)
  1. NYQUIL COLD + FLU ALCOHOL 10% NIGHTTIME RELIEF, FLAVOR UNKNOWN (ETHANO [Suspect]
     Dosage: MOST OF 8 OUNCE BOTTLE SINGLE INGESTION, ORAL
     Route: 048
     Dates: start: 20120122, end: 20120122

REACTIONS (3)
  - DYSARTHRIA [None]
  - INCORRECT DOSE ADMINISTERED [None]
  - MEMORY IMPAIRMENT [None]
